FAERS Safety Report 5923563-3 (Version None)
Quarter: 2008Q4

REPORT INFORMATION
  Report Type: 
  Country: None (occurrence: None)
  Receive Date: 20081020
  Receipt Date: 20081008
  Transmission Date: 20090506
  Serious: Yes (Hospitalization)
  Sender: FDA-Public Use
  Company Number: JP-AMGEN-US313758

PATIENT
  Age: 72 Year
  Sex: Male

DRUGS (3)
  1. ENBREL [Suspect]
     Indication: RHEUMATOID ARTHRITIS
     Dates: start: 20060101, end: 20080601
  2. RHEUMATREX [Suspect]
     Indication: RHEUMATOID ARTHRITIS
     Route: 048
     Dates: start: 20030101
  3. BREDININ [Concomitant]
     Dosage: UNSPECIFIED
     Route: 048
     Dates: start: 20080701

REACTIONS (3)
  - BONE MARROW FAILURE [None]
  - KNEE ARTHROPLASTY [None]
  - PNEUMONIA ASPIRATION [None]
